FAERS Safety Report 8474944-8 (Version None)
Quarter: 2012Q2

REPORT INFORMATION
  Report Type: 
  Country: None (occurrence: None)
  Receive Date: 20120628
  Receipt Date: 20120625
  Transmission Date: 20120825
  Serious: Yes (Other)
  Sender: FDA-Public Use
  Company Number: PHHY2012FR049756

PATIENT
  Sex: Female

DRUGS (2)
  1. POLYETHYLENE GLYCOL [Concomitant]
     Dosage: 4000 UKN, QD
  2. GILENYA [Suspect]
     Indication: MULTIPLE SCLEROSIS
     Dosage: 1 DF, QD
     Route: 048
     Dates: start: 20120429

REACTIONS (3)
  - GAMMA-GLUTAMYLTRANSFERASE INCREASED [None]
  - CHOLESTASIS [None]
  - BLOOD ALKALINE PHOSPHATASE INCREASED [None]
